FAERS Safety Report 19453363 (Version 1)
Quarter: 2021Q2

REPORT INFORMATION
  Report Type: Spontaneous
  Country: CZ (occurrence: CZ)
  Receive Date: 20210623
  Receipt Date: 20210623
  Transmission Date: 20210717
  Serious: Yes (Hospitalization)
  Sender: FDA-Public Use
  Company Number: CZ-LUPIN PHARMACEUTICALS INC.-2021-10031

PATIENT
  Age: 13 Year
  Sex: Male
  Weight: 40 kg

DRUGS (15)
  1. CEFTRIAXONE. [Suspect]
     Active Substance: CEFTRIAXONE
     Indication: EVIDENCE BASED TREATMENT
     Dosage: 50 MILLIGRAM/KILOGRAM, (INJECTION) EVERY 24 HOURS
     Route: 042
  2. CEZERA [Concomitant]
     Indication: PRODUCT USED FOR UNKNOWN INDICATION
     Dosage: UNK
     Route: 065
  3. AMOXICLAV [Concomitant]
     Active Substance: AMOXICILLIN\CLAVULANATE POTASSIUM
     Indication: OTITIS MEDIA
  4. ACYCLOVIR. [Suspect]
     Active Substance: ACYCLOVIR
     Indication: EVIDENCE BASED TREATMENT
     Dosage: UNK
     Route: 065
  5. OTOBACID [Concomitant]
     Indication: OTITIS MEDIA
  6. PARALEN [Concomitant]
     Indication: PYREXIA
     Dosage: UNK
     Route: 065
  7. NASIVIN [Concomitant]
     Active Substance: OXYMETAZOLINE
     Indication: PRODUCT USED FOR UNKNOWN INDICATION
     Dosage: UNK
     Route: 065
  8. IBUPROFEN. [Concomitant]
     Active Substance: IBUPROFEN
     Indication: PYREXIA
     Dosage: UNK
     Route: 065
  9. PARALEN [Concomitant]
     Indication: HEADACHE
  10. MOMETASONE [Concomitant]
     Active Substance: MOMETASONE
     Indication: OTITIS MEDIA
  11. PENBENE [Concomitant]
     Active Substance: PENICILLIN V
     Indication: STREPTOCOCCAL INFECTION
     Dosage: 25000 INTERNATIONAL UNIT/KILOGRAM, EVERY 8 HOURS
     Route: 065
  12. OTOBACID [Concomitant]
     Indication: ACUTE SINUSITIS
     Dosage: UNK, IN EAR
     Route: 065
  13. MOMETASONE [Concomitant]
     Active Substance: MOMETASONE
     Indication: ACUTE SINUSITIS
     Dosage: UNK
     Route: 065
  14. AMOXICLAV [Concomitant]
     Active Substance: AMOXICILLIN\CLAVULANATE POTASSIUM
     Indication: ACUTE SINUSITIS
     Dosage: 625 MILLIGRAM, EVERY 8 HOURS
     Route: 065
  15. IBUPROFEN. [Concomitant]
     Active Substance: IBUPROFEN
     Indication: HEADACHE

REACTIONS (1)
  - Cholelithiasis [Recovered/Resolved]
